FAERS Safety Report 6411764-X (Version None)
Quarter: 2009Q4

REPORT INFORMATION
  Report Type: 
  Country: None (occurrence: None)
  Receive Date: 20091020
  Receipt Date: 20091016
  Transmission Date: 20100525
  Serious: No
  Sender: FDA-Public Use
  Company Number: 20097539

PATIENT
  Sex: Male

DRUGS (1)
  1. LIORESAL [Suspect]
     Indication: MUSCLE SPASTICITY
     Dosage: MCG, DAILY, INTRATHECAL
     Route: 037

REACTIONS (9)
  - DEVICE MALFUNCTION [None]
  - DRUG WITHDRAWAL SYNDROME [None]
  - FEELING JITTERY [None]
  - MEDICAL DEVICE COMPLICATION [None]
  - MUSCLE TWITCHING [None]
  - PRODUCT QUALITY ISSUE [None]
  - PRURITUS [None]
  - ROAD TRAFFIC ACCIDENT [None]
  - UNDERDOSE [None]
